FAERS Safety Report 6209661-8 (Version None)
Quarter: 2009Q2

REPORT INFORMATION
  Report Type: 
  Country: None (occurrence: None)
  Receive Date: 20090601
  Receipt Date: 20090521
  Transmission Date: 20091009
  Serious: Yes (Other)
  Sender: FDA-Public Use
  Company Number: US-BAYER-200921501NA

PATIENT
  Sex: Female

DRUGS (6)
  1. MIRENA [Suspect]
     Indication: DRUG USE FOR UNKNOWN INDICATION
     Dosage: CONTINUOUS DELIVERY
     Route: 015
     Dates: start: 20090301
  2. LITHIUM [Concomitant]
  3. LISINOPRIL [Concomitant]
  4. LAMICTAL [Concomitant]
  5. METFORMIN HCL [Concomitant]
  6. BYETTA [Concomitant]

REACTIONS (12)
  - ABDOMINAL DISTENSION [None]
  - ALTERED VISUAL DEPTH PERCEPTION [None]
  - BLOOD GLUCOSE ABNORMAL [None]
  - DIARRHOEA [None]
  - FULL BLOOD COUNT ABNORMAL [None]
  - HEPATIC ENZYME INCREASED [None]
  - INNER EAR DISORDER [None]
  - METABOLIC SYNDROME [None]
  - METRORRHAGIA [None]
  - MOOD SWINGS [None]
  - SALIVARY HYPERSECRETION [None]
  - WEIGHT INCREASED [None]
